FAERS Safety Report 9148073 (Version 2)
Quarter: 2013Q2

REPORT INFORMATION
  Report Type: Spontaneous
  Country: BR (occurrence: BR)
  Receive Date: 20130308
  Receipt Date: 20130405
  Transmission Date: 20140414
  Serious: Yes (Hospitalization, Other)
  Sender: FDA-Public Use
  Company Number: BR-ABBOTT-13X-020-1057789-00

PATIENT
  Sex: Female
  Weight: 53 kg

DRUGS (3)
  1. SYNTHROID [Suspect]
     Indication: HYPOTHYROIDISM
  2. SYNTHROID [Suspect]
  3. SYNTHROID [Suspect]
     Dosage: STARTED AFTER TSH ALTERED
     Dates: start: 201210

REACTIONS (6)
  - Thyroid neoplasm [Unknown]
  - Thyroid neoplasm [Unknown]
  - Goitre [Unknown]
  - Parathyroid gland enlargement [Unknown]
  - Hypoaesthesia [Recovered/Resolved]
  - Hypersensitivity [Unknown]
